FAERS Safety Report 4712597-2 (Version None)
Quarter: 2005Q3

REPORT INFORMATION
  Report Type: 
  Country: None (occurrence: None)
  Receive Date: 20050711
  Receipt Date: 20050628
  Transmission Date: 20060218
  Serious: Yes (Other)
  Sender: FDA-Public Use
  Company Number: RENA-11099

PATIENT
  Age: 74 Year
  Sex: Male

DRUGS (14)
  1. RENAGEL [Suspect]
     Indication: HYPERPHOSPHATAEMIA
     Dosage: 0.5 G TID PO
     Route: 048
     Dates: start: 20040817, end: 20050201
  2. RENAGEL [Suspect]
     Indication: HYPERPHOSPHATAEMIA
     Dosage: 0.5 G TID PO
     Route: 048
     Dates: start: 20040518, end: 20040629
  3. RENAGEL [Suspect]
     Indication: HYPERPHOSPHATAEMIA
     Dosage: 0.5 G TID PO
     Route: 048
     Dates: start: 20040511, end: 20040517
  4. RENAGEL [Suspect]
     Indication: HYPERPHOSPHATAEMIA
     Dosage: 0.25 G BID PO
     Route: 048
     Dates: start: 20040413, end: 20040510
  5. CALCIUM CARBONATE [Concomitant]
  6. TEPRENONE [Concomitant]
  7. EPINESTINE HYDROCHLORIDE [Concomitant]
  8. CALCIUM POLYSTYRENE SULFONATE [Concomitant]
  9. CILOSTAZOL [Concomitant]
  10. EPOGEN [Concomitant]
  11. CALCITRIOL [Concomitant]
  12. MAXACALCITOL [Concomitant]
  13. NEUROTROPIN [Concomitant]
  14. CHONDROTIN SULFATE SODIUM [Concomitant]

REACTIONS (6)
  - BLOOD CREATINE PHOSPHOKINASE INCREASED [None]
  - BLOOD POTASSIUM INCREASED [None]
  - BLOOD PRESSURE FLUCTUATION [None]
  - MUSCLE SPASMS [None]
  - MUSCULAR WEAKNESS [None]
  - PRURITUS [None]
